FAERS Safety Report 9275742 (Version 2)
Quarter: 2014Q2

REPORT INFORMATION
  Report Type: Spontaneous
  Country: US (occurrence: US)
  Receive Date: 20130507
  Receipt Date: 20140606
  Transmission Date: 20141212
  Serious: Yes (Hospitalization)
  Sender: FDA-Public Use
  Company Number: US-JNJFOC-20130500828

PATIENT
  Age: 82 Year
  Sex: Male
  Weight: 89 kg

DRUGS (8)
  1. XARELTO [Suspect]
     Indication: CEREBROVASCULAR ACCIDENT PROPHYLAXIS
     Route: 048
  2. XARELTO [Suspect]
     Indication: ATRIAL FIBRILLATION
     Route: 048
  3. WARFARIN [Suspect]
     Indication: PRODUCT USED FOR UNKNOWN INDICATION
     Route: 065
     Dates: start: 201110
  4. SYMBICORT [Concomitant]
     Dosage: 2 PUFFS
     Route: 055
  5. IMDUR [Concomitant]
     Route: 048
  6. LOPRESSOR [Concomitant]
     Route: 048
  7. ZOCOR [Concomitant]
     Dosage: EVERY NIGH AT BED TIME
     Route: 048
  8. SPIRIVA [Concomitant]
     Route: 048

REACTIONS (3)
  - Haematuria [Unknown]
  - Urinary retention [Unknown]
  - Prostatic haemorrhage [Unknown]
